FAERS Safety Report 11524089 (Version 1)
Quarter: 2015Q3

REPORT INFORMATION
  Report Type: Spontaneous
  Country: US (occurrence: US)
  Receive Date: 20150903
  Receipt Date: 20150903
  Transmission Date: 20151125
  Serious: No
  Sender: FDA-Public Use
  Company Number: US-ELI_LILLY_AND_COMPANY-US201303003725

PATIENT
  Sex: Female

DRUGS (13)
  1. CYMBALTA [Suspect]
     Active Substance: DULOXETINE HYDROCHLORIDE
     Dosage: 20 MG, UNK
     Dates: start: 201301, end: 20130308
  2. NORVASC [Concomitant]
     Active Substance: AMLODIPINE BESYLATE
  3. POTASSIUM [Concomitant]
     Active Substance: POTASSIUM
  4. ASPIRIN. [Concomitant]
     Active Substance: ASPIRIN
  5. RISPERDAL [Concomitant]
     Active Substance: RISPERIDONE
  6. MIRALAX [Concomitant]
     Active Substance: POLYETHYLENE GLYCOL 3350
  7. LIPITOR [Concomitant]
     Active Substance: ATORVASTATIN CALCIUM
  8. ATIVAN [Concomitant]
     Active Substance: LORAZEPAM
  9. COLACE [Concomitant]
     Active Substance: DOCUSATE SODIUM
  10. TRUSOPT [Concomitant]
     Active Substance: DORZOLAMIDE HYDROCHLORIDE
  11. REMERON [Concomitant]
     Active Substance: MIRTAZAPINE
  12. TRAVATAN [Concomitant]
     Active Substance: TRAVOPROST
  13. PROTONIX [Concomitant]
     Active Substance: PANTOPRAZOLE SODIUM
     Dosage: UNK MG, UNK

REACTIONS (1)
  - Pemphigoid [Unknown]
